FAERS Safety Report 24855361 (Version 1)
Quarter: 2025Q1

REPORT INFORMATION
  Report Type: Spontaneous
  Country: ES (occurrence: ES)
  Receive Date: 20250117
  Receipt Date: 20250117
  Transmission Date: 20250408
  Serious: Yes (Hospitalization, Other)
  Sender: SANDOZ
  Company Number: ES-NOVPHSZ-PHHY2019ES201966

PATIENT
  Age: 25 Year
  Sex: Female

DRUGS (20)
  1. AZATHIOPRINE [Suspect]
     Active Substance: AZATHIOPRINE
     Indication: Immunosuppressant drug therapy
     Route: 065
  2. AZATHIOPRINE [Suspect]
     Active Substance: AZATHIOPRINE
     Indication: Thymoma
     Route: 065
  3. AZATHIOPRINE [Suspect]
     Active Substance: AZATHIOPRINE
     Indication: Myasthenia gravis
     Route: 065
  4. CYCLOPHOSPHAMIDE [Suspect]
     Active Substance: CYCLOPHOSPHAMIDE
     Indication: Immunosuppressant drug therapy
     Route: 065
  5. CYCLOPHOSPHAMIDE [Suspect]
     Active Substance: CYCLOPHOSPHAMIDE
     Indication: Myasthenia gravis
     Route: 065
  6. CYCLOPHOSPHAMIDE [Suspect]
     Active Substance: CYCLOPHOSPHAMIDE
     Indication: Thymoma
  7. ECULIZUMAB [Suspect]
     Active Substance: ECULIZUMAB
     Indication: Immunosuppressant drug therapy
     Route: 065
  8. ENVARSUS XR [Suspect]
     Active Substance: TACROLIMUS
     Indication: Immunosuppressant drug therapy
     Route: 065
  9. ENVARSUS XR [Suspect]
     Active Substance: TACROLIMUS
     Indication: Myasthenia gravis
     Route: 065
  10. ENVARSUS XR [Suspect]
     Active Substance: TACROLIMUS
     Indication: Thymoma
     Route: 065
  11. PREDNISONE [Suspect]
     Active Substance: PREDNISONE
     Indication: Immunosuppressant drug therapy
     Route: 065
  12. PREDNISONE [Suspect]
     Active Substance: PREDNISONE
     Indication: Thymoma
     Route: 065
  13. PREDNISONE [Suspect]
     Active Substance: PREDNISONE
     Indication: Myasthenia gravis
     Route: 065
  14. RITUXIMAB [Suspect]
     Active Substance: RITUXIMAB
     Indication: Immunosuppressant drug therapy
     Dosage: FOR 4 WEEKS AND THEN MONTHLY FOR 2 MONTHS.
     Route: 065
  15. RITUXIMAB [Suspect]
     Active Substance: RITUXIMAB
     Indication: Myasthenia gravis
     Route: 065
  16. RITUXIMAB [Suspect]
     Active Substance: RITUXIMAB
     Indication: Thymoma
  17. TACROLIMUS [Suspect]
     Active Substance: TACROLIMUS
     Indication: Immunosuppressant drug therapy
     Route: 065
  18. TACROLIMUS [Suspect]
     Active Substance: TACROLIMUS
     Indication: Myasthenia gravis
     Route: 065
  19. TACROLIMUS [Suspect]
     Active Substance: TACROLIMUS
     Indication: Thymoma
  20. PYRIDOSTIGMINE [Concomitant]
     Active Substance: PYRIDOSTIGMINE
     Indication: Product used for unknown indication
     Route: 065

REACTIONS (5)
  - Thrombosis [Unknown]
  - Sepsis [Unknown]
  - Drug ineffective [Unknown]
  - Brain stem syndrome [Unknown]
  - Off label use [Unknown]
